FAERS Safety Report 15456822 (Version 2)
Quarter: 2018Q4

REPORT INFORMATION
  Report Type: Spontaneous
  Country: JP (occurrence: JP)
  Receive Date: 20181002
  Receipt Date: 20181018
  Transmission Date: 20190204
  Serious: Yes (Hospitalization, Other)
  Sender: FDA-Public Use
  Company Number: JP-GLAXOSMITHKLINE-JP2018JPN174283

PATIENT
  Age: 59 Year
  Sex: Male

DRUGS (1)
  1. VALTREX [Suspect]
     Active Substance: VALACYCLOVIR HYDROCHLORIDE
     Indication: HERPES ZOSTER
     Dosage: 1000 MG, TID
     Route: 048

REACTIONS (7)
  - Acute kidney injury [Unknown]
  - Pyrexia [Unknown]
  - Oliguria [Unknown]
  - Purpura [Unknown]
  - Cryoglobulinaemia [Unknown]
  - Glomerulonephritis membranoproliferative [Unknown]
  - Abdominal discomfort [Unknown]
